FAERS Safety Report 9346049 (Version 1)
Quarter: 2013Q2

REPORT INFORMATION
  Report Type: Report from Study
  Country: IN (occurrence: IN)
  Receive Date: 20130613
  Receipt Date: 20130613
  Transmission Date: 20140414
  Serious: Yes (Other)
  Sender: FDA-Public Use
  Company Number: IN-SANOFI-AVENTIS-2013SA059434

PATIENT
  Sex: 0

DRUGS (14)
  1. ISONIAZID [Suspect]
     Indication: TUBERCULOSIS OF EYE
     Route: 065
  2. ISONIAZID [Suspect]
     Indication: INTERMEDIATE UVEITIS
     Route: 065
  3. ISONIAZID [Suspect]
     Indication: TUBERCULOSIS OF EYE
     Route: 065
  4. ISONIAZID [Suspect]
     Indication: INTERMEDIATE UVEITIS
     Route: 065
  5. RIFAMPICIN [Suspect]
     Indication: TUBERCULOSIS OF EYE
     Dosage: 450 MG/DAY IF BODY WEIGHT LESS THAN EQUAL TO 50 KG , ELSE 600 MG /DAY
     Route: 065
  6. RIFAMPICIN [Suspect]
     Indication: INTERMEDIATE UVEITIS
     Dosage: 450 MG/DAY IF BODY WEIGHT LESS THAN EQUAL TO 50 KG , ELSE 600 MG /DAY
     Route: 065
  7. RIFAMPICIN [Suspect]
     Indication: TUBERCULOSIS OF EYE
     Dosage: 450 MG/DAY IF BODY WEIGHT LESS THAN EQUAL TO 50 KG , ELSE 600 MG /DAY
     Route: 065
  8. RIFAMPICIN [Suspect]
     Indication: INTERMEDIATE UVEITIS
     Dosage: 450 MG/DAY IF BODY WEIGHT LESS THAN EQUAL TO 50 KG , ELSE 600 MG /DAY
     Route: 065
  9. ETHAMBUTOL [Suspect]
     Indication: TUBERCULOSIS OF EYE
     Route: 065
  10. ETHAMBUTOL [Suspect]
     Indication: INTERMEDIATE UVEITIS
     Route: 065
  11. PREDNISOLONE [Suspect]
     Indication: TUBERCULOSIS OF EYE
     Route: 048
  12. PREDNISOLONE [Suspect]
     Indication: INTERMEDIATE UVEITIS
     Route: 048
  13. PYRAZINAMIDE [Suspect]
     Indication: TUBERCULOSIS OF EYE
     Dosage: 25-30 MG/KG/DAY
     Route: 065
  14. PYRAZINAMIDE [Suspect]
     Indication: INTERMEDIATE UVEITIS
     Dosage: 25-30 MG/KG/DAY
     Route: 065

REACTIONS (1)
  - Intermediate uveitis [Recovered/Resolved]
